FAERS Safety Report 8250302-6 (Version None)
Quarter: 2012Q2

REPORT INFORMATION
  Report Type: 
  Country: None (occurrence: None)
  Receive Date: 20120402
  Receipt Date: 20120323
  Transmission Date: 20120825
  Serious: Yes (Hospitalization, Other)
  Sender: FDA-Public Use
  Company Number: US-ACTELION-A-US2012-61844

PATIENT

DRUGS (21)
  1. ACCUPRIL [Concomitant]
  2. ADVAIR DISKUS 100/50 [Concomitant]
  3. NEXIUM [Concomitant]
  4. AZATHIOPRINE [Concomitant]
  5. PREDNISONE TAB [Concomitant]
  6. RECLAST [Concomitant]
  7. ADCIRCA [Concomitant]
  8. OXYCONTIN [Concomitant]
  9. MULTI-VITAMIN [Concomitant]
  10. EPOPROSTENOL SODIUM [Suspect]
     Indication: PULMONARY ARTERIAL HYPERTENSION
     Dosage: 46 NG/KG, PER MIN
     Route: 042
     Dates: start: 20101005
  11. TRACLEER [Concomitant]
     Indication: PULMONARY ARTERIAL HYPERTENSION
     Dosage: 125 MG, BID
     Route: 048
     Dates: start: 20030211
  12. ADCIRCA [Concomitant]
  13. FENTANYL [Concomitant]
  14. LASIX [Concomitant]
  15. HYDROXYCHLOROQUINE SULFATE [Concomitant]
  16. BACTRIM DS [Concomitant]
  17. FLEXERIL [Concomitant]
  18. PREMARIN [Concomitant]
  19. SINGULAIR [Concomitant]
  20. CALCIUM CARBONATE [Concomitant]
  21. HYDROCODONE BITARTRATE [Concomitant]

REACTIONS (3)
  - BRONCHITIS [None]
  - ASTHENIA [None]
  - COMPRESSION FRACTURE [None]
